FAERS Safety Report 7311955-X (Version None)
Quarter: 2011Q1

REPORT INFORMATION
  Report Type: 
  Country: None (occurrence: None)
  Receive Date: 20110215
  Receipt Date: 20110215
  Transmission Date: 20110831
  Serious: Yes (Other)
  Sender: FDA-Public Use
  Company Number: None

PATIENT
  Age: 73 Year
  Sex: Male
  Weight: 104.5 kg

DRUGS (5)
  1. LISINOPRIL [Suspect]
     Indication: MYOCARDIAL INFARCTION
     Dosage: 12.5MG 1 X DAILY ORAL AT NIGHT
     Route: 048
     Dates: start: 20101201
  2. LISINOPRIL [Suspect]
     Indication: HYPERTENSION
     Dosage: 12.5MG 1 X DAILY ORAL AT NIGHT
     Route: 048
     Dates: start: 20101201
  3. CORVEDILOL [Concomitant]
  4. PLAVIX [Concomitant]
  5. PRAVASTATIN [Concomitant]

REACTIONS (2)
  - DIZZINESS [None]
  - FOOD INTERACTION [None]
